FAERS Safety Report 7311914-7 (Version None)
Quarter: 2011Q1

REPORT INFORMATION
  Report Type: 
  Country: None (occurrence: None)
  Receive Date: 20110215
  Receipt Date: 20110215
  Transmission Date: 20110831
  Serious: Yes (Other)
  Sender: FDA-Public Use
  Company Number: None

PATIENT
  Sex: Male
  Weight: 77.1115 kg

DRUGS (1)
  1. SUBOXONE [Suspect]

REACTIONS (9)
  - BACK PAIN [None]
  - NASAL DISCOMFORT [None]
  - ABDOMINAL PAIN UPPER [None]
  - VOMITING [None]
  - NAUSEA [None]
  - HEADACHE [None]
  - RHINORRHOEA [None]
  - RETCHING [None]
  - LACRIMATION INCREASED [None]
